FAERS Safety Report 9772763 (Version 1)
Quarter: 2013Q4

REPORT INFORMATION
  Report Type: Spontaneous
  Country: US (occurrence: None)
  Receive Date: 20131218
  Receipt Date: 20131218
  Transmission Date: 20140711
  Serious: Yes (Disabling)
  Sender: FDA-Public Use
  Company Number: None

PATIENT
  Age: 34 Year
  Sex: 0

DRUGS (1)
  1. DEXTROSE [Suspect]
     Indication: HYPERKALAEMIA
     Route: 042
     Dates: start: 20130831

REACTIONS (4)
  - Infusion site pain [None]
  - Infusion site extravasation [None]
  - Infusion site necrosis [None]
  - Drug administration error [None]
